FAERS Safety Report 11397664 (Version 1)
Quarter: 2015Q3

REPORT INFORMATION
  Report Type: Report from Study
  Country: US (occurrence: US)
  Receive Date: 20150819
  Receipt Date: 20150819
  Transmission Date: 20151125
  Serious: Yes (Hospitalization)
  Sender: FDA-Public Use
  Company Number: US-ACTELION-A-NJ2015-115938

PATIENT
  Age: 80 Year
  Sex: Female

DRUGS (1)
  1. MACITENTAN [Suspect]
     Active Substance: MACITENTAN
     Indication: PULMONARY ARTERIAL HYPERTENSION
     Dosage: 10 MG, QD
     Route: 048
     Dates: start: 20141030

REACTIONS (5)
  - Dyspnoea [Recovered/Resolved]
  - Rhinorrhoea [Recovered/Resolved]
  - Cardiac failure congestive [Recovering/Resolving]
  - Fluid retention [Recovering/Resolving]
  - Human metapneumovirus test [Recovered/Resolved]

NARRATIVE: CASE EVENT DATE: 20150326
